FAERS Safety Report 8320121-0 (Version None)
Quarter: 2012Q2

REPORT INFORMATION
  Report Type: 
  Country: None (occurrence: None)
  Receive Date: 20120430
  Receipt Date: 20120417
  Transmission Date: 20120825
  Serious: Yes (Other)
  Sender: FDA-Public Use
  Company Number: US-BRISTOL-MYERS SQUIBB COMPANY-16495798

PATIENT
  Age: 41 Year
  Sex: Female

DRUGS (7)
  1. FLUOXETINE [Concomitant]
  2. LEVOTHYROXINE SODIUM [Concomitant]
  3. DOXYCYCLINE [Concomitant]
  4. PREGABALIN [Concomitant]
  5. NADOLOL [Suspect]
     Indication: SYNCOPE
     Dosage: LOW DOSE INTERRUPTED AND RESTARTED
  6. DULOXETINE HYDROCHLORIDE [Concomitant]
  7. METAXALONE [Concomitant]

REACTIONS (1)
  - LEFT VENTRICULAR DYSFUNCTION [None]
